FAERS Safety Report 16692243 (Version 14)
Quarter: 2022Q4

REPORT INFORMATION
  Report Type: Report from Study
  Country: FR (occurrence: FR)
  Receive Date: 20190812
  Receipt Date: 20221227
  Transmission Date: 20230113
  Serious: Yes (Death, Other)
  Sender: FDA-Public Use
  Company Number: FR-ABBVIE-18K-056-2522084-00

PATIENT
  Age: 73 Year
  Sex: Male
  Weight: 74 kg

DRUGS (32)
  1. CIPROFLOXACIN [Suspect]
     Active Substance: CIPROFLOXACIN
     Indication: Infection
     Dosage: UNK
     Route: 065
     Dates: start: 20180921, end: 20180921
  2. VENETOCLAX [Suspect]
     Active Substance: VENETOCLAX
     Indication: Chronic lymphocytic leukaemia
     Dosage: UNK
     Route: 048
  3. VENETOCLAX [Suspect]
     Active Substance: VENETOCLAX
     Indication: Anticoagulant therapy
     Dosage: 20 MILLIGRAM, QD
     Route: 048
     Dates: start: 20180911, end: 20180918
  4. VENETOCLAX [Suspect]
     Active Substance: VENETOCLAX
     Dosage: 50 MILLIGRAM, QD
     Route: 048
     Dates: start: 20180919, end: 20180925
  5. VENETOCLAX [Suspect]
     Active Substance: VENETOCLAX
     Dosage: 100 MILLIGRAM, QD
     Route: 048
     Dates: start: 20180926, end: 20181002
  6. VENETOCLAX [Suspect]
     Active Substance: VENETOCLAX
     Dosage: 1 DOSAGE FORM, QD
     Route: 048
     Dates: start: 20181003, end: 20181009
  7. VENETOCLAX [Suspect]
     Active Substance: VENETOCLAX
     Dosage: UNK, QD
     Route: 048
     Dates: start: 20181010, end: 20181018
  8. VENETOCLAX [Suspect]
     Active Substance: VENETOCLAX
     Dosage: 1 DOSAGE FORM, QD
     Route: 048
     Dates: start: 20181010, end: 20181019
  9. VENETOCLAX [Suspect]
     Active Substance: VENETOCLAX
     Indication: Chronic lymphocytic leukaemia
     Dosage: 20 MILLIGRAM
     Route: 065
     Dates: start: 20180911, end: 20180911
  10. BACTRIM [Suspect]
     Active Substance: SULFAMETHOXAZOLE\TRIMETHOPRIM
     Indication: Infection
     Dosage: UNK
     Route: 065
     Dates: start: 20180923
  11. IMBRUVICA [Suspect]
     Active Substance: IBRUTINIB
     Indication: Chronic lymphocytic leukaemia
     Dosage: END DATE: 09-OCT-2018
     Route: 048
     Dates: start: 20170806, end: 20181009
  12. TRIMETHOPRIM [Suspect]
     Active Substance: TRIMETHOPRIM
     Indication: Infection
     Dosage: SULFAMETHOXAZOLE
     Route: 065
     Dates: start: 20180923
  13. TRIMETHOPRIM [Suspect]
     Active Substance: TRIMETHOPRIM
     Dosage: UNK, SULFAMETHOXAZOLE
     Route: 065
     Dates: start: 20190923
  14. VENETOCLAX [Suspect]
     Active Substance: VENETOCLAX
     Indication: Chronic lymphocytic leukaemia
     Dosage: 20 MILLIGRAM, QD
     Route: 048
     Dates: start: 20180911, end: 20180918
  15. VENETOCLAX [Suspect]
     Active Substance: VENETOCLAX
     Dosage: UNK, QD
     Route: 048
     Dates: start: 20181010, end: 20181019
  16. VENETOCLAX [Suspect]
     Active Substance: VENETOCLAX
     Dosage: UNK, UNK, QD
     Route: 048
     Dates: start: 20181003, end: 20181009
  17. VENETOCLAX [Suspect]
     Active Substance: VENETOCLAX
     Dosage: 100 MILLIGRAM, 100 MG
     Route: 048
     Dates: start: 20180926, end: 20181002
  18. VENETOCLAX [Suspect]
     Active Substance: VENETOCLAX
     Dosage: UNK
     Route: 048
  19. VENETOCLAX [Suspect]
     Active Substance: VENETOCLAX
     Dosage: 50 MILLIGRAM, 50 MG
     Route: 048
     Dates: start: 20180919, end: 20180925
  20. VENETOCLAX [Suspect]
     Active Substance: VENETOCLAX
     Dosage: 20 MILLIGRAM, 20 MG
     Route: 048
     Dates: start: 20180911, end: 20180918
  21. VENETOCLAX [Suspect]
     Active Substance: VENETOCLAX
     Indication: Product used for unknown indication
     Dosage: 50 MILLIGRAM, QD
     Route: 048
     Dates: start: 20180919, end: 20180925
  22. VENETOCLAX [Suspect]
     Active Substance: VENETOCLAX
     Dosage: UNK, (1 QD)
     Route: 048
     Dates: start: 20181010, end: 20181019
  23. VENETOCLAX [Suspect]
     Active Substance: VENETOCLAX
     Dosage: UNK, (1 QD)
     Route: 048
     Dates: start: 20181003, end: 20181009
  24. VENETOCLAX [Suspect]
     Active Substance: VENETOCLAX
     Dosage: 100 MILLIGRAM, QD
     Route: 048
     Dates: start: 20180926, end: 20181002
  25. CEFTAZIDIME [Concomitant]
     Active Substance: CEFTAZIDIME
     Indication: Infection
     Dosage: UNK
     Route: 065
     Dates: start: 20180921, end: 20180922
  26. BUDESONIDE [Concomitant]
     Active Substance: BUDESONIDE
     Indication: Asthma
     Dosage: UNK
     Route: 065
     Dates: start: 20180907, end: 20180927
  27. VALACYCLOVIR HYDROCHLORIDE [Concomitant]
     Active Substance: VALACYCLOVIR HYDROCHLORIDE
     Indication: Antiviral treatment
     Dosage: UNK
     Route: 065
     Dates: start: 20180908
  28. LEUCOVORIN [Concomitant]
     Active Substance: LEUCOVORIN
     Indication: Haematotoxicity
     Dosage: UNK
     Route: 065
     Dates: start: 20180923, end: 20181011
  29. BIMATOPROST\TIMOLOL [Concomitant]
     Active Substance: BIMATOPROST\TIMOLOL
     Indication: Glaucoma
     Dosage: UNK
     Route: 065
     Dates: start: 20180908, end: 20181011
  30. AMLODIPINE [Concomitant]
     Active Substance: AMLODIPINE BESYLATE
     Indication: Hypertension
     Dosage: UNK
     Route: 065
     Dates: start: 20180908, end: 20181011
  31. ENOXAPARIN SODIUM [Concomitant]
     Active Substance: ENOXAPARIN SODIUM
     Indication: Anticoagulant therapy
     Dosage: UNK
     Route: 065
     Dates: start: 20180922, end: 20181011
  32. ALLOPURINOL [Concomitant]
     Active Substance: ALLOPURINOL
     Indication: Hyperuricaemia
     Dosage: UNK
     Route: 065
     Dates: start: 20180907, end: 20181009

REACTIONS (18)
  - Death [Fatal]
  - Respiratory distress [Recovered/Resolved with Sequelae]
  - Rhinitis [Unknown]
  - Pseudomonas infection [Recovered/Resolved]
  - Hypertensive crisis [Recovered/Resolved]
  - Infection [Unknown]
  - Condition aggravated [Unknown]
  - Splenomegaly [Unknown]
  - Hypertension [Unknown]
  - Hyperkalaemia [Recovered/Resolved]
  - Blood potassium increased [Recovered/Resolved]
  - Hypogammaglobulinaemia [Unknown]
  - Oedema peripheral [Not Recovered/Not Resolved]
  - Decubitus ulcer [Recovered/Resolved]
  - Hypocalcaemia [Not Recovered/Not Resolved]
  - Haematotoxicity [Unknown]
  - Diarrhoea [Recovered/Resolved]
  - Off label use [Recovered/Resolved]

NARRATIVE: CASE EVENT DATE: 20180901
